FAERS Safety Report 22260241 (Version 1)
Quarter: 2023Q2

REPORT INFORMATION
  Report Type: Other
  Country: None (occurrence: US)
  Receive Date: 20230427
  Receipt Date: 20230427
  Transmission Date: 20230722
  Serious: Yes (Other)
  Sender: FDA-Public Use
  Company Number: US-ALSI-2023000060

PATIENT
  Age: 54 Year
  Sex: Female

DRUGS (1)
  1. OXYGEN [Suspect]
     Active Substance: OXYGEN
     Indication: Diabetic foot
     Route: 055

REACTIONS (1)
  - Acute pulmonary oedema [Recovered/Resolved with Sequelae]
